FAERS Safety Report 12957631 (Version 1)
Quarter: 2016Q4

REPORT INFORMATION
  Report Type: Spontaneous
  Country: IT (occurrence: IT)
  Receive Date: 20161119
  Receipt Date: 20161119
  Transmission Date: 20170207
  Serious: Yes (Other)
  Sender: FDA-Public Use
  Company Number: IT-ASTRAZENECA-2016SF21298

PATIENT
  Age: 75 Day
  Sex: Female

DRUGS (3)
  1. MEROPENEM. [Suspect]
     Active Substance: MEROPENEM
     Indication: MENINGITIS
     Dosage: 100MG/KG/D IN 3 DIVIDED DOSES
     Route: 042
     Dates: end: 20151130
  2. VANCOMYCIN [Concomitant]
     Active Substance: VANCOMYCIN
     Indication: OSTEOMYELITIS
     Dosage: 40 MG/KG/D IN 3 DIVIDED DOSES
     Dates: end: 20151209
  3. MEROPENEM. [Suspect]
     Active Substance: MEROPENEM
     Indication: OSTEOMYELITIS
     Dosage: 100MG/KG/D IN 3 DIVIDED DOSES
     Route: 042
     Dates: end: 20151130

REACTIONS (3)
  - Hypertriglyceridaemia [Recovered/Resolved]
  - Drug administered to patient of inappropriate age [Unknown]
  - Off label use [Unknown]
